FAERS Safety Report 9312881 (Version 1)
Quarter: 2013Q2

REPORT INFORMATION
  Report Type: Report from Study
  Country: ES (occurrence: ES)
  Receive Date: 20130528
  Receipt Date: 20130528
  Transmission Date: 20140414
  Serious: Yes (Hospitalization)
  Sender: FDA-Public Use
  Company Number: ES-PFIZER INC-2011247355

PATIENT
  Age: 39 Year
  Sex: Male
  Weight: 77.7 kg

DRUGS (3)
  1. TOFACITINIB CITRATE [Suspect]
     Indication: PSORIASIS
     Dosage: 5 MG, 2X/DAY
     Route: 048
     Dates: start: 20110512
  2. TOFACITINIB CITRATE [Suspect]
     Dosage: 5 MG, 2X/DAY
     Route: 048
     Dates: start: 20110715, end: 20110803
  3. PLACEBO [Suspect]
     Indication: PSORIASIS
     Dosage: 0MG, 2X/WEEK
     Route: 058
     Dates: start: 20110512, end: 20110801

REACTIONS (1)
  - Diverticulitis [Not Recovered/Not Resolved]
